FAERS Safety Report 7005976-4 (Version None)
Quarter: 2010Q3

REPORT INFORMATION
  Report Type: 
  Country: None (occurrence: None)
  Receive Date: 20100921
  Receipt Date: 20100907
  Transmission Date: 20110219
  Serious: Yes (Other)
  Sender: FDA-Public Use
  Company Number: US-PFIZER INC-2010064295

PATIENT
  Sex: Male

DRUGS (8)
  1. AZITHROMYCIN [Suspect]
  2. CEFTRIAXONE [Suspect]
  3. CHILDREN'S MOTRIN [Suspect]
     Indication: OROPHARYNGEAL PAIN
     Dosage: 7.5 ML, 2X/DAY
     Route: 048
     Dates: start: 20100414, end: 20100417
  4. CHILDREN'S MOTRIN [Suspect]
     Indication: ABDOMINAL PAIN UPPER
  5. CHILDREN'S TYLENOL SUSPENSION [Suspect]
     Indication: ABDOMINAL PAIN UPPER
     Dosage: UNK
     Dates: start: 20100417
  6. CHILDREN'S TYLENOL SUSPENSION [Suspect]
     Indication: OROPHARYNGEAL PAIN
  7. CHILDREN'S TYLENOL SUSPENSION [Suspect]
     Indication: URTICARIA
  8. BENADRYL [Suspect]
     Indication: RASH
     Dosage: 5 ML, 3X/DAY
     Route: 048
     Dates: start: 20100416

REACTIONS (3)
  - CONDITION AGGRAVATED [None]
  - HYPERSENSITIVITY [None]
  - PRODUCT QUALITY ISSUE [None]
